FAERS Safety Report 5390854-7 (Version None)
Quarter: 2007Q3

REPORT INFORMATION
  Report Type: 
  Country: None (occurrence: None)
  Receive Date: 20070716
  Receipt Date: 20070705
  Transmission Date: 20080115
  Serious: Yes (Death, Other)
  Sender: FDA-Public Use
  Company Number: 230026K07AUS

PATIENT
  Age: 71 Year
  Sex: Male

DRUGS (10)
  1. REBIF [Suspect]
     Indication: RELAPSING-REMITTING MULTIPLE SCLEROSIS
     Dosage: 44 MCG, 3 IN 1 WEEKS, SUBCUTANEOUS
     Route: 058
     Dates: start: 20060410, end: 20070601
  2. LISINOPRIL [Concomitant]
  3. TIOTROPIUM BROMIDE [Concomitant]
  4. GLICLAZIDE [Concomitant]
  5. METFORMIN HCL [Concomitant]
  6. CITALOPRAM HYDROBROMIDE [Concomitant]
  7. POTASSIUM CHLORIDE [Concomitant]
  8. RANITIDINE [Concomitant]
  9. BUDESONIDE W/FORMOTEROL FUMARATE [Concomitant]
  10. METOCLOPRAMIDE HYDROCHLORIDE [Concomitant]

REACTIONS (5)
  - GENERAL PHYSICAL HEALTH DETERIORATION [None]
  - INCONTINENCE [None]
  - MUSCLE CONTRACTURE [None]
  - PNEUMONIA [None]
  - SPEECH DISORDER [None]
